FAERS Safety Report 16678254 (Version 13)
Quarter: 2022Q1

REPORT INFORMATION
  Report Type: Spontaneous
  Country: US (occurrence: US)
  Receive Date: 20190807
  Receipt Date: 20220218
  Transmission Date: 20220423
  Serious: No
  Sender: FDA-Public Use
  Company Number: US-PFIZER INC-2019093177

PATIENT
  Age: 64 Year
  Sex: Female
  Weight: 54.422 kg

DRUGS (4)
  1. NICOTROL [Suspect]
     Active Substance: NICOTINE
     Indication: Smoking cessation therapy
     Dosage: UNK
     Route: 055
  2. NICOTROL [Suspect]
     Active Substance: NICOTINE
     Indication: Nicotine dependence
     Dosage: 10 MG, AS NEEDED (1/2 PUFF PRN 16 X DAY)
     Route: 055
  3. NICOTROL [Suspect]
     Active Substance: NICOTINE
     Dosage: 10 MG, 1-2 PUFF AS NEEDED 16 TIMES (S) A DAY
     Route: 055
  4. LISINOPRIL [Concomitant]
     Active Substance: LISINOPRIL
     Indication: Blood pressure abnormal
     Dosage: 40 MG, UNK

REACTIONS (2)
  - Illness [Unknown]
  - Stress [Unknown]
